FAERS Safety Report 4359720-X (Version None)
Quarter: 2004Q2

REPORT INFORMATION
  Report Type: 
  Country: None (occurrence: None)
  Receive Date: 20040512
  Receipt Date: 20040426
  Transmission Date: 20050107
  Serious: Yes (Disabling)
  Sender: FDA-Public Use
  Company Number: EWC040438998

PATIENT
  Sex: Male

DRUGS (1)
  1. CIALIS [Suspect]
     Indication: ERECTILE DYSFUNCTION
     Dosage: 10 MG/1 DAY
     Dates: start: 20040215

REACTIONS (2)
  - RETINAL ARTERY OCCLUSION [None]
  - SCOTOMA [None]
